FAERS Safety Report 7653676-X (Version None)
Quarter: 2011Q3

REPORT INFORMATION
  Report Type: 
  Country: None (occurrence: None)
  Receive Date: 20110801
  Receipt Date: 20110801
  Transmission Date: 20111222
  Serious: Yes (Hospitalization)
  Sender: FDA-Public Use
  Company Number: None

PATIENT
  Age: 38 Year
  Sex: Female
  Weight: 59 kg

DRUGS (3)
  1. ABRAXANE [Suspect]
     Dates: start: 20110715
  2. CARBOPLATIN [Suspect]
     Dates: start: 20110715
  3. AVASTIN [Suspect]
     Dates: start: 20110715

REACTIONS (13)
  - ANAEMIA [None]
  - DYSPNOEA [None]
  - THROMBOCYTOPENIA [None]
  - NEUTROPENIA [None]
  - NAUSEA [None]
  - PYREXIA [None]
  - VOMITING [None]
  - DEHYDRATION [None]
  - HYPOKALAEMIA [None]
  - CHEST PAIN [None]
  - FATIGUE [None]
  - MUCOSAL INFLAMMATION [None]
  - CHEST DISCOMFORT [None]
